FAERS Safety Report 6875917-9 (Version None)
Quarter: 2010Q3

REPORT INFORMATION
  Report Type: 
  Country: None (occurrence: None)
  Receive Date: 20100727
  Receipt Date: 20070702
  Transmission Date: 20110219
  Serious: Yes (Hospitalization, Other)
  Sender: FDA-Public Use
  Company Number: US-PFIZER INC-2006122230

PATIENT
  Sex: Female
  Weight: 47.2 kg

DRUGS (2)
  1. CELEBREX [Suspect]
     Route: 048
     Dates: start: 19990513, end: 20030301
  2. VIOXX [Suspect]
     Route: 048
     Dates: start: 19990726, end: 20030801

REACTIONS (3)
  - BALANCE DISORDER [None]
  - CEREBROVASCULAR ACCIDENT [None]
  - VERTIGO [None]
